FAERS Safety Report 14168395 (Version 1)
Quarter: 2017Q4

REPORT INFORMATION
  Report Type: Spontaneous
  Country: US (occurrence: US)
  Receive Date: 20171107
  Receipt Date: 20171107
  Transmission Date: 20180321
  Serious: No
  Sender: FDA-Public Use
  Company Number: US-SA-2017SA141874

PATIENT
  Sex: Male

DRUGS (2)
  1. SOLOSTAR [Suspect]
     Active Substance: DEVICE
  2. TOUJEO [Suspect]
     Active Substance: INSULIN GLARGINE
     Dosage: TOOK ANOTHER 12 UNITS DOSE:15 UNIT(S)
     Route: 051

REACTIONS (3)
  - Hyperglycaemia [Unknown]
  - Product use issue [Unknown]
  - Drug ineffective [Unknown]
